FAERS Safety Report 22315214 (Version 1)
Quarter: 2023Q2

REPORT INFORMATION
  Report Type: Spontaneous
  Country: US (occurrence: None)
  Receive Date: 20230511
  Receipt Date: 20230511
  Transmission Date: 20230722
  Serious: Yes (Hospitalization)
  Sender: FDA-Public Use
  Company Number: None

PATIENT
  Sex: Male

DRUGS (1)
  1. KRYSTEXXA [Suspect]
     Active Substance: PEGLOTICASE
     Indication: Gout
     Dosage: 8 MG/ML INTRAVENOUS?? INFUSE 8 MG INTRAVENOUSLY EVERY 2 WEEKS?
     Route: 042
     Dates: start: 20230303

REACTIONS (1)
  - Cardiac failure congestive [None]
